FAERS Safety Report 18377408 (Version 1)
Quarter: 2020Q4

REPORT INFORMATION
  Report Type: Other
  Country: JP (occurrence: JP)
  Receive Date: 20201013
  Receipt Date: 20201013
  Transmission Date: 20210114
  Serious: Yes (Other)
  Sender: FDA-Public Use
  Company Number: JP-ROCHE-2693355

PATIENT

DRUGS (2)
  1. RIBAVIRIN. [Suspect]
     Active Substance: RIBAVIRIN
     Indication: CHRONIC HEPATITIS C
     Dosage: 600 MG FOR PATIENTS WEIGHING /{60 KG, 800 MG FOR PATIENTS WEIGHING 60-80 KG, AND 1,000 MG FOR PATIEN
     Route: 065
  2. PEGINTERFERON ALFA-2B [Suspect]
     Active Substance: PEGINTERFERON ALFA-2B
     Indication: CHRONIC HEPATITIS C
     Route: 065

REACTIONS (14)
  - Interstitial lung disease [Unknown]
  - Pyrexia [Unknown]
  - Anaemia [Unknown]
  - Headache [Unknown]
  - Facial paralysis [Unknown]
  - Depression [Unknown]
  - Cerebral infarction [Unknown]
  - Insomnia [Unknown]
  - Hepatocellular carcinoma [Unknown]
  - Platelet count decreased [Unknown]
  - Visual impairment [Unknown]
  - Syncope [Unknown]
  - Skin disorder [Unknown]
  - Palpitations [Unknown]
